FAERS Safety Report 15272650 (Version 1)
Quarter: 2018Q3

REPORT INFORMATION
  Report Type: Spontaneous
  Country: US (occurrence: US)
  Receive Date: 20180813
  Receipt Date: 20180813
  Transmission Date: 20181010
  Serious: No
  Sender: FDA-Public Use
  Company Number: US-BRISTOL-MYERS SQUIBB COMPANY-BMS-2018-072773

PATIENT
  Sex: Male

DRUGS (1)
  1. ORENCIA [Suspect]
     Active Substance: ABATACEPT
     Indication: RHEUMATOID ARTHRITIS
     Dosage: 125 MG, Q2WK
     Route: 065
     Dates: start: 20180802

REACTIONS (6)
  - Joint swelling [Unknown]
  - Arthralgia [Unknown]
  - Urticaria [Unknown]
  - Dysstasia [Unknown]
  - Rash [Unknown]
  - Product quality issue [Unknown]

NARRATIVE: CASE EVENT DATE: 20180803
